FAERS Safety Report 15648126 (Version 4)
Quarter: 2022Q2

REPORT INFORMATION
  Report Type: Spontaneous
  Country: US (occurrence: US)
  Receive Date: 20181122
  Receipt Date: 20220404
  Transmission Date: 20220721
  Serious: No
  Sender: FDA-Public Use
  Company Number: US-PFIZER INC-2018467467

PATIENT
  Age: 75 Year
  Sex: Female
  Weight: 61.23 kg

DRUGS (2)
  1. IBRANCE [Suspect]
     Active Substance: PALBOCICLIB
     Indication: Breast cancer stage IV
     Dosage: 100 MG, CYCLIC (ONE DAILY FOR 21 DAYS AND OFF FOR 7 DAYS)
     Route: 048
     Dates: start: 20181016
  2. IBRANCE [Suspect]
     Active Substance: PALBOCICLIB
     Indication: Breast cancer female

REACTIONS (4)
  - Product dispensing issue [Unknown]
  - White blood cell count decreased [Unknown]
  - Arthritis [Unknown]
  - Trigger finger [Unknown]
